FAERS Safety Report 6028814-5 (Version None)
Quarter: 2009Q1

REPORT INFORMATION
  Report Type: 
  Country: None (occurrence: None)
  Receive Date: 20090102
  Receipt Date: 20081217
  Transmission Date: 20090719
  Serious: Yes (Other)
  Sender: FDA-Public Use
  Company Number: 2008PL000290

PATIENT
  Age: 14 Year

DRUGS (5)
  1. LABETALOL HYDROCHLORIDE [Suspect]
     Indication: HYPERTENSION
     Dosage: 3 MG/KG; IV
     Route: 042
  2. SODIUM NITROPRUSSIDE INJ [Suspect]
     Indication: HYPERTENSION
     Dosage: 4.8 MG/KG
  3. FRUSEMIDE [Concomitant]
  4. SODIUM NITROPRUSSIDE [Concomitant]
  5. ATENOLOL [Concomitant]

REACTIONS (7)
  - COMPLICATIONS OF TRANSPLANTED KIDNEY [None]
  - DRUG RESISTANCE [None]
  - DRUG TOXICITY [None]
  - HAEMODIALYSIS [None]
  - HYPERTENSION [None]
  - RENAL TUBULAR NECROSIS [None]
  - TREATMENT FAILURE [None]
